FAERS Safety Report 11311327 (Version 1)
Quarter: 2015Q3

REPORT INFORMATION
  Report Type: Spontaneous
  Country: US (occurrence: None)
  Receive Date: 20150724
  Receipt Date: 20150724
  Transmission Date: 20151125
  Serious: Yes (Other)
  Sender: FDA-Public Use
  Company Number: None

PATIENT
  Age: 35 Year
  Sex: Male

DRUGS (2)
  1. TAFINLAR [Suspect]
     Active Substance: DABRAFENIB MESYLATE
     Indication: MALIGNANT MELANOMA
     Dosage: ORAL?2 PO BID??(PER PATIENT)
     Route: 048
     Dates: start: 201504
  2. TAFINLAR [Suspect]
     Active Substance: DABRAFENIB MESYLATE
     Indication: MULTIPLE SCLEROSIS
     Dosage: ORAL?2 PO BID??(PER PATIENT)
     Route: 048
     Dates: start: 201504

REACTIONS (2)
  - Pyrexia [None]
  - Therapy change [None]

NARRATIVE: CASE EVENT DATE: 20150501
